FAERS Safety Report 25637667 (Version 2)
Quarter: 2025Q3

REPORT INFORMATION
  Report Type: Other
  Country: EU (occurrence: EU)
  Receive Date: 20250804
  Receipt Date: 20250828
  Transmission Date: 20251020
  Serious: Yes (Hospitalization)
  Sender: Atnahs Healthcare
  Company Number: None

PATIENT

DRUGS (4)
  1. DIAZEPAM [Suspect]
     Active Substance: DIAZEPAM
     Indication: Product used for unknown indication
     Route: 048
     Dates: start: 20230124, end: 20230124
  2. OXYBATE [Suspect]
     Active Substance: OXYBATE
     Indication: Product used for unknown indication
     Route: 048
     Dates: start: 20230124, end: 20230124
  3. MIDOMAFETAMINE [Suspect]
     Active Substance: MIDOMAFETAMINE
     Indication: Product used for unknown indication
     Route: 048
  4. MIDOMAFETAMINE [Suspect]
     Active Substance: MIDOMAFETAMINE
     Route: 048

REACTIONS (3)
  - Drug abuse [Not Recovered/Not Resolved]
  - Coma [Recovered/Resolved]
  - Respiratory distress [Recovered/Resolved]

NARRATIVE: CASE EVENT DATE: 20221001
